FAERS Safety Report 8553067-3 (Version None)
Quarter: 2012Q3

REPORT INFORMATION
  Report Type: 
  Country: None (occurrence: None)
  Receive Date: 20120731
  Receipt Date: 20120726
  Transmission Date: 20120928
  Serious: Yes (Hospitalization)
  Sender: FDA-Public Use
  Company Number: US-SANOFI-AVENTIS-2012SA050019

PATIENT
  Age: 73 Year
  Sex: Male
  Weight: 81.64 kg

DRUGS (2)
  1. LANTUS [Suspect]
     Dosage: DOSE: 14-20 UNITS/DAILY
     Route: 058
  2. SOLOSTAR [Suspect]

REACTIONS (1)
  - MYOCARDIAL INFARCTION [None]
